FAERS Safety Report 20065933 (Version 2)
Quarter: 2021Q4

REPORT INFORMATION
  Report Type: Spontaneous
  Country: IL (occurrence: IL)
  Receive Date: 20211114
  Receipt Date: 20211125
  Transmission Date: 20220303
  Serious: Yes (Death, Other)
  Sender: FDA-Public Use
  Company Number: IL-SA-SAC20211108001285

PATIENT

DRUGS (2)
  1. LIBTAYO [Suspect]
     Active Substance: CEMIPLIMAB-RWLC
     Indication: Squamous cell carcinoma of skin
     Dosage: UNK
     Dates: start: 20210728, end: 20210728
  2. LIBTAYO [Suspect]
     Active Substance: CEMIPLIMAB-RWLC
     Indication: Squamous cell carcinoma of skin
     Dosage: UNK
     Dates: start: 20210818, end: 20210818

REACTIONS (4)
  - General physical health deterioration [Fatal]
  - Deep vein thrombosis [Fatal]
  - Renal impairment [Fatal]
  - Asthenia [Unknown]
